FAERS Safety Report 5752750-2 (Version None)
Quarter: 2008Q2

REPORT INFORMATION
  Report Type: 
  Country: None (occurrence: None)
  Receive Date: 20080529
  Receipt Date: 20080521
  Transmission Date: 20081010
  Serious: Yes (Hospitalization)
  Sender: FDA-Public Use
  Company Number: US-PFIZER INC-2006038164

PATIENT
  Sex: Female
  Weight: 63.6 kg

DRUGS (10)
  1. SUTENT [Suspect]
     Indication: RENAL CELL CARCINOMA
     Route: 048
     Dates: start: 20060207, end: 20060320
  2. HYDROCHLOROTHIAZIDE [Concomitant]
     Route: 048
  3. PREMARIN [Concomitant]
     Route: 048
  4. HYDROCODONE BITARTRATE [Concomitant]
     Route: 048
  5. PAROXETINE HCL [Concomitant]
     Route: 048
  6. AREDIA [Concomitant]
     Route: 042
  7. ARANESP [Concomitant]
     Route: 058
  8. NORVASC [Concomitant]
     Route: 048
  9. TYLENOL PM [Concomitant]
     Route: 048
  10. TYLENOL [Concomitant]
     Route: 048

REACTIONS (1)
  - CEREBELLAR INFARCTION [None]
